FAERS Safety Report 5659400-4 (Version None)
Quarter: 2008Q1

REPORT INFORMATION
  Report Type: 
  Country: None (occurrence: None)
  Receive Date: 20080311
  Receipt Date: 20080218
  Transmission Date: 20080703
  Serious: Yes (Hospitalization, Other)
  Sender: FDA-Public Use
  Company Number: GB-RANBAXY-2007RR-10841

PATIENT

DRUGS (3)
  1. IBUPROFEN TABLETS BP 400MG [Suspect]
     Indication: OSTEOARTHRITIS
  2. CALCIUM CARBONATE [Suspect]
     Indication: DYSPEPSIA
     Dosage: 5.5 G, UNK
     Route: 048
  3. ALBUTEROL [Concomitant]
     Indication: CHRONIC OBSTRUCTIVE PULMONARY DISEASE
     Route: 055

REACTIONS (10)
  - CHANGE OF BOWEL HABIT [None]
  - CONSTIPATION [None]
  - DIARRHOEA [None]
  - DYSPEPSIA [None]
  - GASTRITIS EROSIVE [None]
  - HYPERCALCAEMIA [None]
  - MILK-ALKALI SYNDROME [None]
  - NOCTURIA [None]
  - POLYDIPSIA [None]
  - POLYURIA [None]
